FAERS Safety Report 6493668-X (Version None)
Quarter: 2009Q4

REPORT INFORMATION
  Report Type: 
  Country: None (occurrence: None)
  Receive Date: 20091214
  Receipt Date: 20091207
  Transmission Date: 20100525
  Serious: Yes (Hospitalization)
  Sender: FDA-Public Use
  Company Number: B0610257A

PATIENT
  Age: 11 Year
  Sex: Female

DRUGS (1)
  1. RELENZA [Suspect]
     Indication: INFLUENZA
     Dosage: 10MG TWICE PER DAY
     Route: 055
     Dates: start: 20091126, end: 20091127

REACTIONS (10)
  - ABNORMAL BEHAVIOUR [None]
  - DECREASED APPETITE [None]
  - DEHYDRATION [None]
  - DELIRIUM FEBRILE [None]
  - GASTROINTESTINAL DISORDER [None]
  - INCOHERENT [None]
  - MALAISE [None]
  - MOVEMENT DISORDER [None]
  - RESTLESSNESS [None]
  - VOMITING [None]
